FAERS Safety Report 6833566-2 (Version None)
Quarter: 2010Q3

REPORT INFORMATION
  Report Type: 
  Country: None (occurrence: None)
  Receive Date: 20100712
  Receipt Date: 20070327
  Transmission Date: 20110219
  Serious: No
  Sender: FDA-Public Use
  Company Number: US-PFIZER INC-2007026158

PATIENT
  Sex: Female
  Weight: 50.8 kg

DRUGS (7)
  1. CHANTIX [Suspect]
     Indication: SMOKING CESSATION THERAPY
     Dates: start: 20070321
  2. EFFEXOR [Concomitant]
  3. XANAX [Concomitant]
  4. LIPITOR [Concomitant]
  5. ACETYLSALICYLIC ACID [Concomitant]
  6. CENTRUM [Concomitant]
  7. VITAMIN E [Concomitant]

REACTIONS (2)
  - DRUG INEFFECTIVE [None]
  - FEELING ABNORMAL [None]
